FAERS Safety Report 5716582-3 (Version None)
Quarter: 2008Q2

REPORT INFORMATION
  Report Type: 
  Country: None (occurrence: None)
  Receive Date: 20080424
  Receipt Date: 20080417
  Transmission Date: 20081010
  Serious: Yes (Hospitalization)
  Sender: FDA-Public Use
  Company Number: JP-ELI_LILLY_AND_COMPANY-JP200804004677

PATIENT
  Sex: Male

DRUGS (2)
  1. HUMALOG MIX 50/50 [Suspect]
     Dosage: 6 IU, EACH MORNING
     Route: 058
  2. HUMALOG MIX 50/50 [Suspect]
     Dosage: 2 IU, EACH EVENING
     Route: 058

REACTIONS (1)
  - FRACTURE [None]
